FAERS Safety Report 6957492-3 (Version None)
Quarter: 2010Q3

REPORT INFORMATION
  Report Type: 
  Country: None (occurrence: None)
  Receive Date: 20100831
  Receipt Date: 20100825
  Transmission Date: 20110219
  Serious: Yes (Hospitalization)
  Sender: FDA-Public Use
  Company Number: US-GENZYME-FABR-1001242

PATIENT
  Sex: Female
  Weight: 50 kg

DRUGS (11)
  1. FABRAZYME [Suspect]
     Indication: FABRY'S DISEASE
     Dosage: 50 MG, Q2W
     Route: 042
     Dates: start: 20081110
  2. PRILOSEC [Concomitant]
     Indication: PRODUCT USED FOR UNKNOWN INDICATION
  3. PANCREASE MT [Concomitant]
     Indication: PRODUCT USED FOR UNKNOWN INDICATION
  4. LIDOCAINE HCL VISCOUS [Concomitant]
     Indication: PRODUCT USED FOR UNKNOWN INDICATION
  5. HI-COSAMINE [Concomitant]
     Indication: PRODUCT USED FOR UNKNOWN INDICATION
  6. VICODIN [Concomitant]
     Indication: PRODUCT USED FOR UNKNOWN INDICATION
  7. TRAMADOL HCL [Concomitant]
     Indication: PRODUCT USED FOR UNKNOWN INDICATION
  8. TYLENOL-500 [Concomitant]
     Indication: PREMEDICATION
     Dosage: 650 MG, PRN
  9. TYLENOL-500 [Concomitant]
     Dosage: 650 MG, Q2W
     Route: 048
  10. MARCAINE [Concomitant]
     Indication: EPIDURAL ANAESTHESIA
     Dosage: UNK
     Route: 008
     Dates: start: 20100221, end: 20100221
  11. FENTANYL CITRATE [Concomitant]
     Indication: EPIDURAL ANAESTHESIA
     Dosage: UNK
     Route: 008
     Dates: start: 20100221, end: 20100221

REACTIONS (3)
  - ABDOMINAL PAIN [None]
  - ADVERSE EVENT [None]
  - PREMATURE RUPTURE OF MEMBRANES [None]
